FAERS Safety Report 16685679 (Version 3)
Quarter: 2020Q3

REPORT INFORMATION
  Report Type: Report from Study
  Country: US (occurrence: US)
  Receive Date: 20190809
  Receipt Date: 20200703
  Transmission Date: 20201102
  Serious: Yes (Hospitalization, Other)
  Sender: FDA-Public Use
  Company Number: US-SA-2019SA212508

PATIENT

DRUGS (2)
  1. DUPILUMAB [Suspect]
     Active Substance: DUPILUMAB
     Indication: ASTHMA
     Dosage: 600 MG, 1X
     Route: 058
     Dates: start: 20190507, end: 20190507
  2. DUPILUMAB [Suspect]
     Active Substance: DUPILUMAB
     Dosage: 300 MG, QOW
     Route: 058

REACTIONS (9)
  - Staphylococcal infection [Recovered/Resolved]
  - Product use issue [Unknown]
  - Cholecystectomy [Recovered/Resolved]
  - Postoperative wound infection [Recovered/Resolved]
  - Nightmare [Unknown]
  - Intestinal operation [Recovered/Resolved]
  - Stoma closure [Recovered/Resolved]
  - Condition aggravated [Unknown]
  - Flatulence [Unknown]

NARRATIVE: CASE EVENT DATE: 201905
